FAERS Safety Report 25573583 (Version 1)
Quarter: 2025Q3

REPORT INFORMATION
  Report Type: Report from Study
  Country: US (occurrence: US)
  Receive Date: 20250717
  Receipt Date: 20250717
  Transmission Date: 20251020
  Serious: Yes (Hospitalization, Other)
  Sender: GILEAD
  Company Number: US-GILEAD-2025-0720645

PATIENT
  Age: 92 Year
  Sex: Female

DRUGS (2)
  1. AMBRISENTAN [Suspect]
     Active Substance: AMBRISENTAN
     Indication: Pulmonary arterial hypertension
     Dosage: 5 MG, QD
     Route: 048
     Dates: start: 20240409
  2. UPTRAVI [Concomitant]
     Active Substance: SELEXIPAG

REACTIONS (12)
  - Cardiac failure [Unknown]
  - Pneumonia [Unknown]
  - Pulmonary embolism [Unknown]
  - Pain in extremity [Unknown]
  - Muscle spasms [Unknown]
  - Musculoskeletal pain [Unknown]
  - Weight decreased [Unknown]
  - Muscular weakness [Unknown]
  - Myalgia [Unknown]
  - Decreased appetite [Unknown]
  - Hypophagia [Unknown]
  - Oxygen consumption increased [Unknown]

NARRATIVE: CASE EVENT DATE: 20250101
